FAERS Safety Report 9749199 (Version 1)
Quarter: 2013Q4

REPORT INFORMATION
  Report Type: Spontaneous
  Country: US (occurrence: US)
  Receive Date: 20131212
  Receipt Date: 20131212
  Transmission Date: 20140711
  Serious: No
  Sender: FDA-Public Use
  Company Number: US-INCYTE CORPORATION-2013IN002418

PATIENT
  Age: 54 Year
  Sex: Female

DRUGS (6)
  1. JAKAFI [Suspect]
     Indication: MYELOFIBROSIS
     Dosage: 15 MG, QD
     Route: 048
     Dates: start: 20130823
  2. MULTIVITAMIN [Concomitant]
  3. FLAXSEED [Concomitant]
  4. CALCIUM SUPPLEMENT [Concomitant]
  5. FOLIC ACID [Concomitant]
  6. ATIVAN [Concomitant]

REACTIONS (3)
  - Diarrhoea [Unknown]
  - Haemoglobin decreased [Unknown]
  - Red blood cell count decreased [Unknown]
